FAERS Safety Report 16845867 (Version 1)
Quarter: 2019Q3

REPORT INFORMATION
  Report Type: Spontaneous
  Country: US (occurrence: US)
  Receive Date: 20190924
  Receipt Date: 20190924
  Transmission Date: 20191005
  Serious: Yes (Hospitalization)
  Sender: FDA-Public Use
  Company Number: US-CATALYST PHARMACEUTICALS, INC-2019CAT00251

PATIENT
  Age: 88 Year
  Sex: Female
  Weight: 91.61 kg

DRUGS (5)
  1. FIRDAPSE [Suspect]
     Active Substance: AMIFAMPRIDINE
     Indication: MYASTHENIC SYNDROME
     Dosage: 5 MG, 3X/DAY
     Route: 048
     Dates: start: 20190523, end: 20190702
  2. METOPROLOL. [Concomitant]
     Active Substance: METOPROLOL
  3. FIRDAPSE [Suspect]
     Active Substance: AMIFAMPRIDINE
     Dosage: 25 MG, 1X/DAY FOR 4 DAYS
     Route: 048
     Dates: start: 20190707
  4. XARELTO [Concomitant]
     Active Substance: RIVAROXABAN
  5. FIRDAPSE [Suspect]
     Active Substance: AMIFAMPRIDINE
     Dosage: 20 MG, 1X/DAY FOR 4 DAYS
     Route: 048
     Dates: start: 20190703, end: 20190706

REACTIONS (3)
  - Intentional overdose [Not Recovered/Not Resolved]
  - Blood urine present [Recovered/Resolved]
  - Asthenia [Unknown]

NARRATIVE: CASE EVENT DATE: 20190528
